FAERS Safety Report 5619692-4 (Version None)
Quarter: 2008Q1

REPORT INFORMATION
  Report Type: 
  Country: None (occurrence: None)
  Receive Date: 20080208
  Receipt Date: 20071025
  Transmission Date: 20080703
  Serious: No
  Sender: FDA-Public Use
  Company Number: A0689798A

PATIENT

DRUGS (1)
  1. ALTABAX [Suspect]
     Indication: DRUG USE FOR UNKNOWN INDICATION
     Dosage: 1APP UNKNOWN
     Route: 061
     Dates: start: 20071001, end: 20071001

REACTIONS (2)
  - APPLICATION SITE IRRITATION [None]
  - APPLICATION SITE PAIN [None]
